FAERS Safety Report 25100458 (Version 1)
Quarter: 2025Q1

REPORT INFORMATION
  Report Type: Spontaneous
  Country: US (occurrence: None)
  Receive Date: 20250319
  Receipt Date: 20250319
  Transmission Date: 20250409
  Serious: Yes (unspecified)
  Sender: FDA-CTU
  Company Number: None

PATIENT
  Age: 25 Year
  Sex: Male
  Weight: 90 kg

DRUGS (2)
  1. .DELTA.8-TETRAHYDROCANNABINOL\HERBALS [Suspect]
     Active Substance: .DELTA.8-TETRAHYDROCANNABINOL\HERBALS
  2. COFFEE [Suspect]
     Active Substance: ARABICA COFFEE BEAN\COFFEE BEAN

REACTIONS (5)
  - Vomiting [None]
  - Communication disorder [None]
  - Palpitations [None]
  - Movement disorder [None]
  - Product quality issue [None]

NARRATIVE: CASE EVENT DATE: 20250316
